FAERS Safety Report 8951402 (Version 2)
Quarter: 2012Q4

REPORT INFORMATION
  Report Type: 
  Country: US (occurrence: US)
  Receive Date: 20121207
  Receipt Date: 20121219
  Transmission Date: 20130627
  Serious: No
  Sender: FDA-Public Use
  Company Number: US-BAYER-2012-117797

PATIENT

DRUGS (1)
  1. GADAVIST [Suspect]
     Dosage: 20 ml, UNK
     Dates: start: 20121107, end: 20121107

REACTIONS (1)
  - Drug ineffective [None]
